FAERS Safety Report 4433188-7 (Version None)
Quarter: 2004Q3

REPORT INFORMATION
  Report Type: 
  Country: None (occurrence: None)
  Receive Date: 20040823
  Receipt Date: 20040809
  Transmission Date: 20050211
  Serious: Yes (Death)
  Sender: FDA-Public Use
  Company Number: 163-20785-04070032

PATIENT
  Age: 67 Year
  Sex: Male

DRUGS (1)
  1. THALOMID [Suspect]
     Indication: AMYLOIDOSIS
     Dosage: 100 MG, QHS, ORAL
     Route: 048
     Dates: start: 20040102, end: 20040301

REACTIONS (3)
  - AMYLOIDOSIS [None]
  - COMPLICATIONS OF BONE MARROW TRANSPLANT [None]
  - DISEASE PROGRESSION [None]
